FAERS Safety Report 21512168 (Version 2)
Quarter: 2023Q1

REPORT INFORMATION
  Report Type: Report from Study
  Country: US (occurrence: US)
  Receive Date: 20221027
  Receipt Date: 20230217
  Transmission Date: 20230418
  Serious: Yes (Death, Other)
  Sender: FDA-Public Use
  Company Number: US-ABBVIE-4173837

PATIENT
  Age: 71 Year
  Sex: Male

DRUGS (2)
  1. VENCLEXTA [Suspect]
     Active Substance: VENETOCLAX
     Indication: Acute myeloid leukaemia
     Route: 048
  2. VIDAZA [Concomitant]
     Active Substance: AZACITIDINE
     Indication: Product used for unknown indication
     Dates: start: 20221019, end: 20221022

REACTIONS (5)
  - Death [Fatal]
  - Blast cell count increased [Unknown]
  - Pain [Unknown]
  - Hiccups [Unknown]
  - Pneumonia [Unknown]

NARRATIVE: CASE EVENT DATE: 20221027
